FAERS Safety Report 20510399 (Version 2)
Quarter: 2023Q2

REPORT INFORMATION
  Report Type: Spontaneous
  Country: GB (occurrence: GB)
  Receive Date: 20220224
  Receipt Date: 20230523
  Transmission Date: 20230722
  Serious: Yes (Other)
  Sender: FDA-Public Use
  Company Number: GB-MHRA-TPP27986383C6636133YC1644489838803

PATIENT
  Age: 90 Year
  Sex: Female
  Weight: 67 kg

DRUGS (14)
  1. NITROFURANTOIN [Suspect]
     Active Substance: NITROFURANTOIN
     Indication: Product used for unknown indication
     Dosage: 100 MILLIGRAM
     Route: 065
     Dates: start: 20220209
  2. APIXABAN [Concomitant]
     Active Substance: APIXABAN
     Indication: Product used for unknown indication
     Dosage: 1 DOSAGE FORM, ONCE A DAY(TAKE ONE TWICE A DAY)
     Route: 065
     Dates: start: 20210119, end: 20211208
  3. BETAHISTINE [Concomitant]
     Active Substance: BETAHISTINE
     Indication: Product used for unknown indication
     Dosage: 1 DOSAGE FORM, 3 TIMES A DAY (ONE TO BE TAKEN THREE TIMES A DAY)
     Route: 065
     Dates: start: 20210119
  4. Cetraben [Concomitant]
     Indication: Product used for unknown indication
     Dosage: 1 DOSAGE FORM, TWO TIMES A DAY(USE TWICE A DAY AS DIRECTED BY DERMATOLOGY)
     Route: 065
     Dates: start: 20210119
  5. CLOBETASOL [Concomitant]
     Active Substance: CLOBETASOL
     Indication: Product used for unknown indication
     Dosage: UNK, ONCE A DAY (APPLY ONCE DAILY AS DIRECTED BY CONSULTANT)
     Route: 065
     Dates: start: 20210119
  6. DOXYCYCLINE [Concomitant]
     Active Substance: DOXYCYCLINE
     Indication: Product used for unknown indication
     Dosage: 1 DOSAGE FORM, ONCE A DAY (ONE TO BE TAKEN DAILY LONGTERM AS DIRECTED BY T...)
     Route: 065
     Dates: start: 20210119, end: 20211208
  7. EMOLLIN [Concomitant]
     Indication: Product used for unknown indication
     Dosage: UNK, ONCE A DAY (APPLY ONCE DAILY AS DIRECTED BY CONSULTANT)
     Route: 065
     Dates: start: 20210330
  8. FERROUS FUMARATE [Concomitant]
     Active Substance: FERROUS FUMARATE
     Indication: Product used for unknown indication
     Dosage: 1 DOSAGE FORM, ONCE A DAY (1 DAILY)
     Route: 065
     Dates: start: 20211208
  9. LOSARTAN [Concomitant]
     Active Substance: LOSARTAN
     Indication: Product used for unknown indication
     Dosage: 1 DOSAGE FORM, ONCE A DAY (ONCE DAILY)
     Route: 065
     Dates: start: 20210119
  10. NITROFURANTOIN [Concomitant]
     Active Substance: NITROFURANTOIN
     Indication: Product used for unknown indication
     Dosage: 1 DOSAGE FORM, TWO TIMES A DAY (TAKE ONE TWICE DAILY)
     Route: 065
     Dates: start: 20220208
  11. OMEPRAZOLE [Concomitant]
     Active Substance: OMEPRAZOLE
     Indication: Product used for unknown indication
     Dosage: 1 DOSAGE FORM, ONCE A DAY(TAKE ONE DAILY)
     Route: 065
     Dates: start: 20210525
  12. AMDINOCILLIN PIVOXIL [Concomitant]
     Active Substance: AMDINOCILLIN PIVOXIL
     Indication: Ill-defined disorder
     Dosage: 2 DOSAGE FORM (WOMEN TAKE TWO TABLETS INITIALLY THEN ONE)
     Route: 065
     Dates: start: 20220210
  13. PROCHLORPERAZINE [Concomitant]
     Active Substance: PROCHLORPERAZINE
     Indication: Product used for unknown indication
     Dosage: 1 DOSAGE FORM, 3 TIMES A DAY(TAKE ONE 3 TIMES/DAY)
     Route: 065
     Dates: start: 20210119
  14. DILTIAZEM HYDROCHLORIDE [Concomitant]
     Active Substance: DILTIAZEM HYDROCHLORIDE
     Indication: Product used for unknown indication
     Dosage: 1 DOSAGE FORM, ONCE A DAY (ONE DAILY)
     Route: 065
     Dates: start: 20210119

REACTIONS (3)
  - Vomiting [Recovering/Resolving]
  - Dizziness [Recovering/Resolving]
  - Palpitations [Recovering/Resolving]

NARRATIVE: CASE EVENT DATE: 20220209
